FAERS Safety Report 9908061 (Version 1)
Quarter: 2014Q1

REPORT INFORMATION
  Report Type: Spontaneous
  Country: US (occurrence: None)
  Receive Date: 20140211
  Receipt Date: 20140211
  Transmission Date: 20141002
  Serious: Yes (Other)
  Sender: FDA-Public Use
  Company Number: 2014P1000483

PATIENT
  Age: 3 Year
  Sex: Male

DRUGS (7)
  1. AMPHETAMINE SALTS TABLETS 30MG [Suspect]
     Route: 048
     Dates: start: 20140117, end: 20140117
  2. OXCARBAZEPINE [Suspect]
     Route: 048
     Dates: start: 20140117, end: 20140117
  3. BUSPIRONE [Suspect]
     Route: 048
     Dates: start: 20140117, end: 20140117
  4. METOCLOPRAMIDE [Suspect]
     Route: 048
     Dates: start: 20140117, end: 20140117
  5. HYDROXYZINE [Suspect]
     Route: 048
     Dates: start: 20140117, end: 20140117
  6. VITAMIN B COMPLEX [Suspect]
     Route: 048
     Dates: start: 20140117, end: 20140117
  7. VITAMIN C 500 MG [Suspect]
     Route: 048
     Dates: start: 20140117, end: 20140117

REACTIONS (5)
  - Mydriasis [None]
  - Disorientation [None]
  - Feeling abnormal [None]
  - Hallucination [None]
  - Heart rate increased [None]
